FAERS Safety Report 16891754 (Version 1)
Quarter: 2019Q4

REPORT INFORMATION
  Report Type: Report from Study
  Country: CA (occurrence: CA)
  Receive Date: 20191007
  Receipt Date: 20191007
  Transmission Date: 20200122
  Serious: Yes (Other)
  Sender: FDA-Public Use
  Company Number: CA-NALPROPION PHARMACEUTICALS INC.-2019-007816

PATIENT

DRUGS (3)
  1. CONTRAVE [Suspect]
     Active Substance: BUPROPION HYDROCHLORIDE\NALTREXONE HYDROCHLORIDE
     Indication: WEIGHT CONTROL
     Dosage: START DATE: 05/JUN/2019 (APPROXIMATELY) AND STOP DATE: 11/JUN/2019 (APPROXIMATELY)
     Route: 048
     Dates: start: 201906, end: 201906
  2. CONTRAVE [Suspect]
     Active Substance: BUPROPION HYDROCHLORIDE\NALTREXONE HYDROCHLORIDE
     Dosage: START DATE: 12/JUN/2019 (APPROXIMATELY) AND STOP DATE: 18/JUN/2019 (APPROXIMATELY)
     Route: 048
     Dates: start: 201906, end: 201906
  3. CONTRAVE [Suspect]
     Active Substance: BUPROPION HYDROCHLORIDE\NALTREXONE HYDROCHLORIDE
     Dosage: START DATE: 19/JUN/2019 (APPROXIMATELY)
     Route: 048
     Dates: start: 201906

REACTIONS (8)
  - Nightmare [Recovered/Resolved]
  - Drug titration error [Unknown]
  - Wrist surgery [Unknown]
  - Feeling abnormal [Not Recovered/Not Resolved]
  - Constipation [Recovered/Resolved]
  - Dizziness [Recovered/Resolved]
  - Feeling jittery [Recovering/Resolving]
  - Tremor [Not Recovered/Not Resolved]

NARRATIVE: CASE EVENT DATE: 2019
